FAERS Safety Report 19295218 (Version 1)
Quarter: 2021Q2

REPORT INFORMATION
  Report Type: Spontaneous
  Country: US (occurrence: US)
  Receive Date: 20210524
  Receipt Date: 20210524
  Transmission Date: 20210717
  Serious: No
  Sender: FDA-Public Use
  Company Number: US-SA-2021SA162170

PATIENT

DRUGS (3)
  1. SOLIQUA 100/33 [Suspect]
     Active Substance: INSULIN GLARGINE\LIXISENATIDE
     Dosage: 100 UNITS/ML+33 MCG/ML, SOLUTION FOR INJECTION IN PRE?FILLED PEN
     Route: 065
  2. TOUJEO MAX [Suspect]
     Active Substance: INSULIN GLARGINE
     Route: 065
  3. LANTUS SOLOSTAR [Suspect]
     Active Substance: INSULIN GLARGINE
     Route: 065

REACTIONS (1)
  - Product temperature excursion issue [Unknown]

NARRATIVE: CASE EVENT DATE: 20210317
